FAERS Safety Report 20058538 (Version 1)
Quarter: 2021Q4

REPORT INFORMATION
  Report Type: Spontaneous
  Country: GB (occurrence: GB)
  Receive Date: 20211111
  Receipt Date: 20211111
  Transmission Date: 20220303
  Serious: Yes (Other)
  Sender: FDA-Public Use
  Company Number: GB-AstraZeneca-2021A786789

PATIENT
  Age: 88 Year
  Sex: Male
  Weight: 92 kg

DRUGS (13)
  1. FLUOROURACIL [Suspect]
     Active Substance: FLUOROURACIL
     Dosage: UNK,APPLY ONCE TO TWICE DAILY FOR 3-4 WEEKS; ;
     Dates: start: 20211001
  2. HYDROCORTISONE SODIUM SUCCINATE [Suspect]
     Active Substance: HYDROCORTISONE SODIUM SUCCINATE
     Dosage: 2 DF, 2X/DAY (BID; APPLY SPARINGLY TO THE AFFECTED AREA)
     Dates: start: 20211001
  3. ACETAMINOPHEN [Suspect]
     Active Substance: ACETAMINOPHEN
     Dosage: 2 DF, 4X/DAY (QID)
     Dates: start: 20210122
  4. NITROGLYCERIN [Suspect]
     Active Substance: NITROGLYCERIN
     Dosage: 1 DF (PUFF)
     Dates: start: 20200326
  5. CALCIUM CARBONATE\SODIUM ALGINATE\SODIUM BICARBONATE [Suspect]
     Active Substance: CALCIUM CARBONATE\SODIUM ALGINATE\SODIUM BICARBONATE
     Dosage: 10 ML, 4X/DAY(QID;)
     Dates: start: 20210910
  6. CHOLECALCIFEROL [Suspect]
     Active Substance: CHOLECALCIFEROL
     Dosage: UNK, TO BE TAKEN EACH MORNING; ;
     Dates: start: 20210122
  7. DABIGATRAN ETEXILATE [Suspect]
     Active Substance: DABIGATRAN ETEXILATE
     Indication: Coagulopathy
     Dosage: 1 DF, 2X/DAY (BID)
     Dates: start: 20211015
  8. DILTIAZEM [Suspect]
     Active Substance: DILTIAZEM
     Dosage: 1 DF, DAILY( DAILY, IN THE MORNING)
     Dates: start: 20201109
  9. ISOPROPYL MYRISTATE\PARAFFIN [Suspect]
     Active Substance: ISOPROPYL MYRISTATE\PARAFFIN
     Dosage: 1 DF, DAILY(APPLY)
     Dates: start: 20200326
  10. OMEPRAZOLE [Suspect]
     Active Substance: OMEPRAZOLE
     Dosage: 350 MG
     Route: 048
     Dates: start: 20210910, end: 20211015
  11. RAMIPRIL [Suspect]
     Active Substance: RAMIPRIL
     Dosage: 1 DF, DAILY
     Dates: start: 20201015
  12. TAMSULOSIN HYDROCHLORIDE [Suspect]
     Active Substance: TAMSULOSIN HYDROCHLORIDE
     Dosage: 1 DF, DAILY
     Dates: start: 20210219
  13. ACETAMINOPHEN\BENZALKONIUM\DICHLORALPHENAZONE\DIMETHICONE\HYDROCORTISO [Suspect]
     Active Substance: ACETAMINOPHEN\BENZALKONIUM\DICHLORALPHENAZONE\DIMETHICONE\HYDROCORTISONE\ISOMETHEPTENE\NYSTATIN
     Indication: Skin lesion
     Dosage: 1 DF, 3X/DAY(TID, APPLY UNTIL THE LESIONS HAVE HEALED)
     Dates: start: 20210910, end: 20210924

REACTIONS (3)
  - Erythema multiforme [Not Recovered/Not Resolved]
  - Off label use [Unknown]
  - Product use issue [Unknown]

NARRATIVE: CASE EVENT DATE: 20211001
